FAERS Safety Report 9366266 (Version 3)
Quarter: 2013Q3

REPORT INFORMATION
  Report Type: Spontaneous
  Country: US (occurrence: US)
  Receive Date: 20130625
  Receipt Date: 20130730
  Transmission Date: 20140515
  Serious: Yes (Hospitalization)
  Sender: FDA-Public Use
  Company Number: US-PFIZER INC-2013183862

PATIENT
  Age: 85 Year
  Sex: Female

DRUGS (1)
  1. REVATIO [Suspect]
     Indication: PULMONARY HYPERTENSION
     Dosage: UNK, 3XDAY (20MG HALF TABLET THREE TIMES DAILY)
     Dates: start: 20100203, end: 2013

REACTIONS (3)
  - Dizziness [Unknown]
  - Dyspnoea [Unknown]
  - Feeling abnormal [Unknown]
